FAERS Safety Report 8665276 (Version 2)
Quarter: 2012Q4

REPORT INFORMATION
  Report Type: 
  Country: US (occurrence: US)
  Receive Date: 20120716
  Receipt Date: 20120910
  Transmission Date: 20130627
  Serious: Yes (Other)
  Sender: FDA-Public Use
  Company Number: US-BAYER-2012-069838

PATIENT
  Age: 31 Year
  Sex: Female
  Weight: 77.55 kg

DRUGS (6)
  1. MIRENA [Suspect]
     Indication: CONTRACEPTION
     Dosage: 20 mcg/24hr, CONT
     Route: 015
     Dates: start: 20120207, end: 20120705
  2. MIRENA [Suspect]
     Indication: MENSTRUATION IRREGULAR
  3. XANAX [Concomitant]
     Dosage: 0.5 mg, QD
  4. MULTIVITAMIN [Concomitant]
     Dosage: UNK UNK, QD
  5. VITAMIN B12 [Concomitant]
     Dosage: UNK UNK, QD
  6. FISH OIL [Concomitant]
     Dosage: UNK UNK, QD

REACTIONS (3)
  - Vaginal haemorrhage [None]
  - Device expulsion [None]
  - Device component issue [None]
